FAERS Safety Report 5843255-9 (Version None)
Quarter: 2008Q3

REPORT INFORMATION
  Report Type: 
  Country: None (occurrence: None)
  Receive Date: 20080813
  Receipt Date: 20080805
  Transmission Date: 20090109
  Serious: Yes (Other)
  Sender: FDA-Public Use
  Company Number: US-BAYER-200812959BCC

PATIENT
  Age: 28 Year
  Sex: Male
  Weight: 75 kg

DRUGS (2)
  1. MIDOL [Suspect]
     Indication: HEADACHE
     Dosage: AS USED: 440 MG  UNIT DOSE: 220 MG
     Route: 048
     Dates: start: 20080701
  2. ALEVE (CAPLET) [Suspect]
     Indication: HEADACHE
     Dosage: AS USED: 440 MG  UNIT DOSE: 220 MG
     Route: 048
     Dates: start: 20080720

REACTIONS (10)
  - CHEILITIS [None]
  - DYSURIA [None]
  - ERYTHEMA [None]
  - GENITAL ERYTHEMA [None]
  - HYPERSENSITIVITY [None]
  - LIP SWELLING [None]
  - PENIS DISORDER [None]
  - PHARYNGEAL OEDEMA [None]
  - SWELLING FACE [None]
  - THROAT TIGHTNESS [None]
